FAERS Safety Report 15819824 (Version 2)
Quarter: 2019Q1

REPORT INFORMATION
  Report Type: Spontaneous
  Country: US (occurrence: US)
  Receive Date: 20190114
  Receipt Date: 20190117
  Transmission Date: 20190417
  Serious: Yes (Hospitalization, Other)
  Sender: FDA-Public Use
  Company Number: US-HIKMA PHARMACEUTICALS USA INC.-US-H14001-19-00020

PATIENT
  Sex: Male

DRUGS (8)
  1. TRUVADA [Suspect]
     Active Substance: EMTRICITABINE\TENOFOVIR DISOPROXIL FUMARATE
     Route: 065
     Dates: start: 20120104
  2. RALTEGRAVIR. [Suspect]
     Active Substance: RALTEGRAVIR
     Route: 065
     Dates: start: 20120104
  3. RITONAVIR. [Suspect]
     Active Substance: RITONAVIR
     Indication: PRODUCT USED FOR UNKNOWN INDICATION
     Route: 065
  4. RITONAVIR. [Suspect]
     Active Substance: RITONAVIR
     Route: 065
     Dates: start: 20120104
  5. DARUNAVIR [Suspect]
     Active Substance: DARUNAVIR
     Indication: PRODUCT USED FOR UNKNOWN INDICATION
     Route: 065
  6. TRUVADA [Suspect]
     Active Substance: EMTRICITABINE\TENOFOVIR DISOPROXIL FUMARATE
     Indication: PRODUCT USED FOR UNKNOWN INDICATION
     Dosage: 200-300 MG
     Route: 065
  7. DARUNAVIR [Suspect]
     Active Substance: DARUNAVIR
     Route: 065
     Dates: start: 20120104
  8. RALTEGRAVIR. [Suspect]
     Active Substance: RALTEGRAVIR
     Indication: PRODUCT USED FOR UNKNOWN INDICATION
     Route: 065

REACTIONS (7)
  - Acquired immunodeficiency syndrome [Unknown]
  - Sinusitis [Unknown]
  - Erythema of eyelid [Unknown]
  - Upper respiratory tract infection [Unknown]
  - Treatment noncompliance [Unknown]
  - Eye pain [Recovered/Resolved]
  - Mycobacterium avium complex infection [Unknown]

NARRATIVE: CASE EVENT DATE: 2012
